FAERS Safety Report 6463378-3 (Version None)
Quarter: 2009Q4

REPORT INFORMATION
  Report Type: 
  Country: None (occurrence: None)
  Receive Date: 20091201
  Receipt Date: 20090903
  Transmission Date: 20100525
  Serious: Yes (Other)
  Sender: FDA-Public Use
  Company Number: US-AMGEN-QUU360791

PATIENT
  Sex: Female

DRUGS (5)
  1. ENBREL [Suspect]
     Indication: RHEUMATOID ARTHRITIS
     Route: 058
     Dates: start: 20081013
  2. METHOTREXATE [Concomitant]
  3. HUMALOG [Concomitant]
  4. LANTUS [Concomitant]
  5. DEPO-PROVERA [Concomitant]

REACTIONS (10)
  - BLOOD CALCIUM DECREASED [None]
  - GRAND MAL CONVULSION [None]
  - HEADACHE [None]
  - INJECTION SITE ERYTHEMA [None]
  - INJECTION SITE PRURITUS [None]
  - INJECTION SITE RASH [None]
  - INJECTION SITE REACTION [None]
  - INJECTION SITE SWELLING [None]
  - PARAESTHESIA ORAL [None]
  - TONGUE INJURY [None]
